FAERS Safety Report 8848182 (Version 1)
Quarter: 2012Q4

REPORT INFORMATION
  Report Type: 
  Country: JP (occurrence: JP)
  Receive Date: 20121018
  Receipt Date: 20121018
  Transmission Date: 20130627
  Serious: Yes (Hospitalization, Other)
  Sender: FDA-Public Use
  Company Number: JP-009507513-1210JPN005560

PATIENT
  Age: 24 Year
  Sex: Female

DRUGS (2)
  1. REMERON [Suspect]
     Dosage: daily dose unknown
     Route: 048
     Dates: start: 201112
  2. REMERON [Suspect]
     Dosage: daily dose unknown
     Route: 048

REACTIONS (4)
  - Malaise [Recovering/Resolving]
  - Irritability [Recovering/Resolving]
  - Suicide attempt [Recovering/Resolving]
  - Dependence [Recovering/Resolving]
